FAERS Safety Report 8240669-7 (Version None)
Quarter: 2012Q1

REPORT INFORMATION
  Report Type: 
  Country: None (occurrence: None)
  Receive Date: 20120328
  Receipt Date: 20120321
  Transmission Date: 20120608
  Serious: Yes (Life-Threatening)
  Sender: FDA-Public Use
  Company Number: GB-PFIZER INC-2012073411

PATIENT
  Age: 59 Year
  Sex: Male

DRUGS (9)
  1. TOVIAZ [Suspect]
     Dosage: 4 MG, UNK
  2. ACETYLSALICYLIC ACID [Concomitant]
  3. NEURONTIN [Concomitant]
  4. OXYBUTYNIN [Concomitant]
  5. ALENDRONIC ACID [Concomitant]
  6. ATORVASTATIN [Concomitant]
  7. ACETAMINOPHEN WITH PROPOXYPHENE HCL TAB [Concomitant]
  8. BACLOFEN [Concomitant]
  9. CARBAMAZEPINE [Concomitant]

REACTIONS (4)
  - SYNCOPE [None]
  - LOSS OF CONSCIOUSNESS [None]
  - DIZZINESS [None]
  - RESPIRATORY ARREST [None]
